FAERS Safety Report 4943708-1 (Version None)
Quarter: 2006Q1

REPORT INFORMATION
  Report Type: 
  Country: None (occurrence: None)
  Receive Date: 20060310
  Receipt Date: 20060303
  Transmission Date: 20060701
  Serious: Yes (Hospitalization)
  Sender: FDA-Public Use
  Company Number: 2006-00811

PATIENT
  Age: 49 Year
  Sex: Female

DRUGS (5)
  1. VERAPAMIL [Suspect]
     Indication: MIGRAINE
     Dosage: ORAL
     Route: 048
  2. SIROLIMUS(SIROLIMUS) [Suspect]
     Indication: PROPHYLAXIS AGAINST TRANSPLANT REJECTION
     Dosage: 8 MG, DAILY, ORAL
     Route: 048
     Dates: start: 20010421, end: 20011201
  3. ACETYLSALICYLIC ACID SRT [Concomitant]
  4. INSULIN [Concomitant]
  5. TACROLIMUS [Concomitant]

REACTIONS (3)
  - DRUG INTERACTION [None]
  - DRUG LEVEL INCREASED [None]
  - SMALL INTESTINE ULCER [None]
